FAERS Safety Report 10376611 (Version 2)
Quarter: 2014Q3

REPORT INFORMATION
  Report Type: Spontaneous
  Country: US (occurrence: US)
  Receive Date: 20140811
  Receipt Date: 20140811
  Transmission Date: 20150326
  Serious: Yes (Hospitalization)
  Sender: FDA-Public Use
  Company Number: US-ELI_LILLY_AND_COMPANY-US201309003060

PATIENT
  Sex: Female

DRUGS (4)
  1. FORTEO [Suspect]
     Active Substance: TERIPARATIDE
     Indication: OSTEOPOROSIS
     Dosage: UNK, QD
     Route: 065
     Dates: start: 2012
  2. FORTEO [Suspect]
     Active Substance: TERIPARATIDE
     Dosage: UNK, QD
     Route: 065
  3. METOPROLOL SUCCINATE. [Concomitant]
     Active Substance: METOPROLOL SUCCINATE
     Dosage: 0.5 DF, QD
  4. ALPRAZOLAM. [Concomitant]
     Active Substance: ALPRAZOLAM
     Dosage: UNK, QD

REACTIONS (11)
  - Back pain [Unknown]
  - Palpitations [Recovered/Resolved]
  - Fear of disease [Unknown]
  - Onychoclasis [Unknown]
  - Dysphonia [Unknown]
  - Weight increased [Unknown]
  - Appendicitis perforated [Unknown]
  - Arthralgia [Unknown]
  - Hypoacusis [Not Recovered/Not Resolved]
  - Incorrect product storage [Recovered/Resolved]
  - Drug dose omission [Unknown]
